FAERS Safety Report 4729342-7 (Version None)
Quarter: 2005Q3

REPORT INFORMATION
  Report Type: 
  Country: None (occurrence: None)
  Receive Date: 20050729
  Receipt Date: 20050530
  Transmission Date: 20060218
  Serious: Yes (Hospitalization)
  Sender: FDA-Public Use
  Company Number: PHBS2005JP07705

PATIENT
  Age: 51 Year
  Sex: Female
  Weight: 67 kg

DRUGS (9)
  1. AREDIA [Suspect]
     Indication: METASTASES TO BONE
     Dosage: 30 MG/DAY
     Route: 042
     Dates: start: 20050507, end: 20050507
  2. TAXOL [Suspect]
     Indication: BREAST CANCER
     Dosage: 100 MG/D
     Route: 042
     Dates: start: 20050416, end: 20050430
  3. FOSAMAX [Concomitant]
     Dosage: 25 MG/D
     Route: 048
     Dates: start: 20050425, end: 20050502
  4. TERNELIN [Concomitant]
     Indication: MUSCULOSKELETAL STIFFNESS
     Dosage: 3 MG/D
     Route: 048
     Dates: start: 20050425
  5. ACINON [Concomitant]
     Indication: DUODENAL ULCER
     Dosage: 300 MG/D
     Route: 048
     Dates: start: 20041229
  6. BULKOSE [Concomitant]
     Indication: CONSTIPATION
     Dosage: 4.5 G/D
     Route: 048
     Dates: start: 20030621, end: 20050614
  7. MAGNESIUM OXIDE [Concomitant]
     Indication: CONSTIPATION
     Dosage: 1.5 G/D
     Route: 048
     Dates: start: 20030621, end: 20050614
  8. BIO THREE [Concomitant]
     Indication: CONSTIPATION
     Dosage: 3 G/D
     Route: 048
     Dates: start: 20020425
  9. CODEINE PHOSPHATE [Concomitant]
     Indication: CANCER PAIN
     Dosage: 60 MG/D
     Route: 048
     Dates: start: 20050418, end: 20050507

REACTIONS (15)
  - AGGRESSION [None]
  - BRAIN NEOPLASM [None]
  - COGNITIVE DISORDER [None]
  - CONVULSION [None]
  - ENCEPHALOPATHY [None]
  - EYE MOVEMENT DISORDER [None]
  - FOAMING AT MOUTH [None]
  - INTUBATION [None]
  - LOSS OF CONSCIOUSNESS [None]
  - MENINGITIS [None]
  - MUSCLE RIGIDITY [None]
  - PROTEIN TOTAL ABNORMAL [None]
  - PYREXIA [None]
  - RESTLESSNESS [None]
  - SPEECH DISORDER [None]
